FAERS Safety Report 6891925-6 (Version None)
Quarter: 2010Q3

REPORT INFORMATION
  Report Type: 
  Country: None (occurrence: None)
  Receive Date: 20100731
  Receipt Date: 20071129
  Transmission Date: 20110219
  Serious: Yes (Other)
  Sender: FDA-Public Use
  Company Number: US-PFIZER INC-2007090648

PATIENT
  Sex: Male
  Weight: 77 kg

DRUGS (4)
  1. CAMPTOSAR [Suspect]
     Indication: COLON CANCER
     Route: 042
     Dates: start: 20070904
  2. AVASTIN [Concomitant]
  3. LEUCOVORIN CALCIUM [Concomitant]
  4. FLUOROURACIL [Concomitant]

REACTIONS (3)
  - ABDOMINAL PAIN [None]
  - NAUSEA [None]
  - VOMITING [None]
